FAERS Safety Report 5408596-8 (Version None)
Quarter: 2007Q3

REPORT INFORMATION
  Report Type: 
  Country: None (occurrence: None)
  Receive Date: 20070808
  Receipt Date: 20070730
  Transmission Date: 20080115
  Serious: Yes (Hospitalization, Other)
  Sender: FDA-Public Use
  Company Number: US-PFIZER INC-2006109434

PATIENT
  Sex: Female

DRUGS (4)
  1. BEXTRA [Suspect]
     Indication: OSTEOARTHRITIS
     Dates: start: 20011116, end: 20020101
  2. BEXTRA [Suspect]
     Indication: BACK PAIN
  3. BEXTRA [Suspect]
     Indication: ARTHRALGIA
  4. VIOXX [Suspect]
     Route: 048
     Dates: start: 19990901

REACTIONS (3)
  - MYOCARDIAL INFARCTION [None]
  - THROMBOSIS [None]
  - VASCULAR INJURY [None]
